FAERS Safety Report 22071197 (Version 6)
Quarter: 2025Q1

REPORT INFORMATION
  Report Type: Spontaneous
  Country: US (occurrence: US)
  Receive Date: 20230307
  Receipt Date: 20250305
  Transmission Date: 20250408
  Serious: No
  Sender: PFIZER
  Company Number: US-PFIZER INC-PV202300041279

PATIENT
  Age: 66 Year
  Sex: Female
  Weight: 79.38 kg

DRUGS (3)
  1. IBRANCE [Suspect]
     Active Substance: PALBOCICLIB
     Indication: Neoplasm malignant
  2. IBRANCE [Suspect]
     Active Substance: PALBOCICLIB
     Dates: start: 202205
  3. FASLODEX [Concomitant]
     Active Substance: FULVESTRANT

REACTIONS (1)
  - No adverse event [Unknown]
